FAERS Safety Report 4383297-6 (Version None)
Quarter: 2004Q2

REPORT INFORMATION
  Report Type: 
  Country: None (occurrence: None)
  Receive Date: 20040609
  Receipt Date: 20040527
  Transmission Date: 20050107
  Serious: Yes (Other)
  Sender: FDA-Public Use
  Company Number: GBS040514900

PATIENT
  Age: 69 Year
  Sex: Female
  Weight: 56 kg

DRUGS (2)
  1. EVISTA [Suspect]
     Indication: OSTEOPOROSIS
     Dosage: 60 MG/1 DAY
     Dates: start: 20030306
  2. MULTIVITAMIN [Concomitant]

REACTIONS (4)
  - CONDITION AGGRAVATED [None]
  - DEAFNESS [None]
  - DISEASE PROGRESSION [None]
  - OTOSCLEROSIS [None]
